FAERS Safety Report 4274764-4 (Version None)
Quarter: 2004Q1

REPORT INFORMATION
  Report Type: 
  Country: None (occurrence: None)
  Receive Date: 20040120
  Receipt Date: 20040120
  Transmission Date: 20041129
  Serious: Yes (Hospitalization)
  Sender: FDA-Public Use
  Company Number: None

PATIENT
  Age: 56 Year
  Sex: Male
  Weight: 79.8331 kg

DRUGS (3)
  1. ETOPOSIDE [Suspect]
     Dates: end: 20031220
  2. CISPLATIN [Suspect]
     Dates: start: 20031222
  3. RADIATION THERAPY [Suspect]
     Dates: start: 20030107

REACTIONS (1)
  - PULMONARY EMBOLISM [None]
